FAERS Safety Report 12479114 (Version 1)
Quarter: 2016Q2

REPORT INFORMATION
  Report Type: Spontaneous
  Country: US (occurrence: US)
  Receive Date: 20160620
  Receipt Date: 20160620
  Transmission Date: 20160815
  Serious: Yes (Other)
  Sender: FDA-Public Use
  Company Number: US-JNJFOC-20160604457

PATIENT
  Age: 68 Year
  Sex: Male
  Weight: 83.92 kg

DRUGS (1)
  1. LISTERINE TOTAL CARE STAIN REMOVER ANTI CAVITY FRESHMINT [Suspect]
     Active Substance: SODIUM FLUORIDE
     Indication: DENTAL DISORDER PROPHYLAXIS
     Dosage: 2 TEASPOONS
     Route: 048
     Dates: start: 20160524, end: 20160526

REACTIONS (3)
  - Oral discomfort [Recovering/Resolving]
  - Tongue discolouration [Recovering/Resolving]
  - Burn oral cavity [Recovering/Resolving]

NARRATIVE: CASE EVENT DATE: 20160524
